FAERS Safety Report 19273304 (Version 1)
Quarter: 2021Q2

REPORT INFORMATION
  Report Type: Spontaneous
  Country: US (occurrence: US)
  Receive Date: 20210518
  Receipt Date: 20210518
  Transmission Date: 20210717
  Serious: Yes (Hospitalization)
  Sender: FDA-Public Use
  Company Number: None

PATIENT
  Age: 50 Year
  Sex: Female

DRUGS (23)
  1. HUMIRA [Suspect]
     Active Substance: ADALIMUMAB
     Indication: PSORIATIC ARTHROPATHY
     Route: 058
  2. LEVETIRACETA [Concomitant]
     Active Substance: LEVETIRACETAM
  3. DOK [Concomitant]
     Active Substance: DOCUSATE SODIUM
  4. CARB/LEVO ER [Concomitant]
  5. HYDROCHLOROT [Concomitant]
     Active Substance: HYDROCHLOROTHIAZIDE
  6. LEVOTHYROXIN [Concomitant]
     Active Substance: LEVOTHYROXINE
  7. ARMOUR THYRO [Concomitant]
  8. BUPROPION. [Concomitant]
     Active Substance: BUPROPION
  9. METAXALONE. [Concomitant]
     Active Substance: METAXALONE
  10. METHOTREXATE. [Concomitant]
     Active Substance: METHOTREXATE
  11. OXYCOD/APP [Concomitant]
  12. AMLODIPINE [Concomitant]
     Active Substance: AMLODIPINE BESYLATE
  13. BUPROPN HCL XL [Concomitant]
  14. ESTRADIOL. [Concomitant]
     Active Substance: ESTRADIOL
  15. IBUPROFEN. [Concomitant]
     Active Substance: IBUPROFEN
  16. MONTELUKAST [Concomitant]
     Active Substance: MONTELUKAST SODIUM
  17. SERTRALINE [Concomitant]
     Active Substance: SERTRALINE HYDROCHLORIDE
  18. GABAPENTIN. [Concomitant]
     Active Substance: GABAPENTIN
  19. NORETHIN ACE [Concomitant]
  20. ONDANSETRON [Concomitant]
     Active Substance: ONDANSETRON
  21. PRAMIPEXOLE. [Concomitant]
     Active Substance: PRAMIPEXOLE
  22. ACYCLOVIR. [Concomitant]
     Active Substance: ACYCLOVIR
  23. FOLIC ACID. [Concomitant]
     Active Substance: FOLIC ACID

REACTIONS (2)
  - Pain [None]
  - Intentional dose omission [None]

NARRATIVE: CASE EVENT DATE: 20210428
